FAERS Safety Report 6564690-X (Version None)
Quarter: 2010Q1

REPORT INFORMATION
  Report Type: 
  Country: None (occurrence: None)
  Receive Date: 20100201
  Receipt Date: 20100119
  Transmission Date: 20100710
  Serious: Yes (Hospitalization, Other)
  Sender: FDA-Public Use
  Company Number: US-JNJFOC-20100108390

PATIENT
  Age: 46 Year
  Sex: Female

DRUGS (2)
  1. INFLIXIMAB [Suspect]
     Indication: CROHN'S DISEASE
     Dosage: THERAPY DURATION 3 YEARS
     Route: 042
  2. AZATHIOPRINE [Concomitant]

REACTIONS (3)
  - HISTOPLASMOSIS [None]
  - IMMUNE RECONSTITUTION SYNDROME [None]
  - PULMONARY MASS [None]
